FAERS Safety Report 10141102 (Version 2)
Quarter: 2014Q2

REPORT INFORMATION
  Report Type: Spontaneous
  Country: CN (occurrence: CN)
  Receive Date: 20140429
  Receipt Date: 20140516
  Transmission Date: 20141212
  Serious: Yes (Hospitalization)
  Sender: FDA-Public Use
  Company Number: CN-JNJFOC-20140410254

PATIENT
  Age: 81 Year
  Sex: Male

DRUGS (1)
  1. TYLENOL COLD [Suspect]
     Indication: PYREXIA
     Route: 048
     Dates: start: 20130501, end: 20130501

REACTIONS (1)
  - Liver function test abnormal [Recovering/Resolving]
